FAERS Safety Report 12573195 (Version 1)
Quarter: 2016Q3

REPORT INFORMATION
  Report Type: Spontaneous
  Country: US (occurrence: None)
  Receive Date: 20160719
  Receipt Date: 20160719
  Transmission Date: 20161109
  Serious: Yes (Life-Threatening, Hospitalization)
  Sender: FDA-Public Use
  Company Number: None

PATIENT
  Age: 73 Year
  Sex: Female
  Weight: 58.97 kg

DRUGS (15)
  1. FISH OIL [Concomitant]
     Active Substance: FISH OIL
  2. FLECAINIDE ACETATE. [Concomitant]
     Active Substance: FLECAINIDE ACETATE
  3. PACEMAKER [Concomitant]
  4. SIMVASTATIN. [Concomitant]
     Active Substance: SIMVASTATIN
  5. VOLTAREN [Suspect]
     Active Substance: DICLOFENAC SODIUM
     Indication: JOINT SWELLING
     Dosage: 1-4 GRAMS, MEASURE 1 GRAM 4 TIMES DAILY, 4 TIMES DAILY, ON THE KNEES
  6. AMLODIPINE BESYLATE. [Concomitant]
     Active Substance: AMLODIPINE BESYLATE
  7. METROLPOLO TART [Concomitant]
  8. VOLTAREN [Suspect]
     Active Substance: DICLOFENAC SODIUM
     Indication: MENISCUS INJURY
     Dosage: 1-4 GRAMS, MEASURE 1 GRAM 4 TIMES DAILY, 4 TIMES DAILY, ON THE KNEES
  9. POTASSIUM [Concomitant]
     Active Substance: POTASSIUM
  10. MULTI VITAMIN [Concomitant]
     Active Substance: VITAMINS
  11. CALTRATE [Concomitant]
     Active Substance: CALCIUM CARBONATE
  12. XARELTO [Concomitant]
     Active Substance: RIVAROXABAN
  13. CALCIUM [Concomitant]
     Active Substance: CALCIUM
  14. VITAMIN D [Concomitant]
     Active Substance: CHOLECALCIFEROL
  15. MAGNESIUM [Concomitant]
     Active Substance: MAGNESIUM

REACTIONS (8)
  - Atrioventricular block [None]
  - Dizziness [None]
  - Heart rate increased [None]
  - Cardio-respiratory arrest [None]
  - Rib fracture [None]
  - Vertigo [None]
  - Syncope [None]
  - Drug interaction [None]

NARRATIVE: CASE EVENT DATE: 20160106
